FAERS Safety Report 7374699-4 (Version None)
Quarter: 2011Q1

REPORT INFORMATION
  Report Type: 
  Country: None (occurrence: None)
  Receive Date: 20110325
  Receipt Date: 20100811
  Transmission Date: 20110831
  Serious: No
  Sender: FDA-Public Use
  Company Number: US-MYLANLABS-2010S1014530

PATIENT
  Age: 80 Year
  Sex: Female

DRUGS (17)
  1. SYNTHROID [Concomitant]
     Route: 048
  2. AMBIEN [Concomitant]
  3. MOBIC [Concomitant]
  4. NORVASC [Concomitant]
     Route: 048
  5. ATARAX [Concomitant]
  6. CYMBALTA [Concomitant]
  7. HYDROCHLOROTHIAZIDE [Concomitant]
     Route: 048
  8. FENTANYL-100 [Suspect]
     Indication: PAIN
     Dosage: CHANGED Q72H
     Route: 062
     Dates: start: 20091201
  9. CELEXA [Concomitant]
  10. LOPRESSOR [Concomitant]
  11. LISINOPRIL [Concomitant]
     Route: 048
  12. LYRICA [Concomitant]
     Dosage: CAUSES SWELLING
     Route: 048
  13. VITAMIN D [Concomitant]
  14. ASPIRIN [Concomitant]
  15. XANAX [Concomitant]
  16. HYDROCODONE BITARTRATE AND ACETAMINOPHEN [Concomitant]
     Route: 048
  17. LASIX [Concomitant]

REACTIONS (4)
  - SCAB [None]
  - WRONG TECHNIQUE IN DRUG USAGE PROCESS [None]
  - PRURITUS [None]
  - OEDEMA [None]
